FAERS Safety Report 12754302 (Version 3)
Quarter: 2016Q4

REPORT INFORMATION
  Report Type: Report from Study
  Country: MX (occurrence: MX)
  Receive Date: 20160915
  Receipt Date: 20161014
  Transmission Date: 20170207
  Serious: Yes (Hospitalization)
  Sender: FDA-Public Use
  Company Number: MX-BIOGEN-2016BI00291200

PATIENT
  Age: 24 Year
  Sex: Female

DRUGS (1)
  1. TYSABRI [Suspect]
     Active Substance: NATALIZUMAB
     Indication: MULTIPLE SCLEROSIS
     Route: 042
     Dates: start: 201504

REACTIONS (5)
  - Intra-abdominal haemorrhage [Unknown]
  - Maternal exposure during pregnancy [Recovered/Resolved]
  - Self esteem decreased [Unknown]
  - Intentional self-injury [Unknown]
  - Ectopic pregnancy [Recovered/Resolved]
